FAERS Safety Report 8173690-8 (Version None)
Quarter: 2012Q1

REPORT INFORMATION
  Report Type: 
  Country: None (occurrence: None)
  Receive Date: 20120229
  Receipt Date: 20120217
  Transmission Date: 20120608
  Serious: Yes (Hospitalization)
  Sender: FDA-Public Use
  Company Number: US-ACTELION-A-US2011-58859

PATIENT

DRUGS (1)
  1. EPOPROSTENOL SODIUM [Suspect]
     Indication: PULMONARY ARTERIAL HYPERTENSION
     Dosage: UNK
     Route: 042
     Dates: start: 20110319

REACTIONS (8)
  - PLATELET TRANSFUSION [None]
  - PAIN IN JAW [None]
  - DIZZINESS [None]
  - EPISTAXIS [None]
  - AMMONIA INCREASED [None]
  - PLATELET COUNT DECREASED [None]
  - PAIN IN EXTREMITY [None]
  - MENTAL STATUS CHANGES [None]
